FAERS Safety Report 19936064 (Version 5)
Quarter: 2022Q1

REPORT INFORMATION
  Report Type: Report from Study
  Country: US (occurrence: US)
  Receive Date: 20211009
  Receipt Date: 20220112
  Transmission Date: 20220423
  Serious: No
  Sender: FDA-Public Use
  Company Number: NVSC2021US230183

PATIENT
  Sex: Female

DRUGS (2)
  1. ENTRESTO [Suspect]
     Active Substance: SACUBITRIL\VALSARTAN
     Indication: Product used for unknown indication
     Dosage: 1 DF, QD(24.26 MG)
     Route: 048
     Dates: start: 20210817
  2. ENTRESTO [Suspect]
     Active Substance: SACUBITRIL\VALSARTAN
     Dosage: 50 MG, BID (24.26 MG)
     Route: 048
     Dates: start: 20210817

REACTIONS (5)
  - Peripheral swelling [Unknown]
  - Incision site impaired healing [Unknown]
  - Pain of skin [Unknown]
  - Sinusitis [Unknown]
  - Cough [Unknown]
